FAERS Safety Report 7015390-3 (Version None)
Quarter: 2010Q3

REPORT INFORMATION
  Report Type: 
  Country: None (occurrence: None)
  Receive Date: 20100922
  Receipt Date: 20100914
  Transmission Date: 20110219
  Serious: Yes (Congenital Anomaly)
  Sender: FDA-Public Use
  Company Number: 2009AL007649

PATIENT
  Sex: Female

DRUGS (5)
  1. LEVETIRACETAM [Suspect]
     Indication: DRUG EXPOSURE DURING PREGNANCY
     Dosage: TRPL
     Route: 064
  2. LAMOTRIGINE [Concomitant]
  3. FOLIC ACID [Concomitant]
  4. LABETALOL HCL [Concomitant]
  5. PREV MEDS [Concomitant]

REACTIONS (4)
  - CONGENITAL ANOMALY [None]
  - CONGENITAL CEREBRAL CYST [None]
  - EXOMPHALOS [None]
  - MATERNAL DRUGS AFFECTING FOETUS [None]
